FAERS Safety Report 20034892 (Version 1)
Quarter: 2021Q4

REPORT INFORMATION
  Report Type: Report from Study
  Country: BE (occurrence: BE)
  Receive Date: 20211104
  Receipt Date: 20211104
  Transmission Date: 20220303
  Serious: Yes (Hospitalization, Other)
  Sender: FDA-Public Use
  Company Number: BE-INCYTE CORPORATION-2021IN003058

PATIENT
  Age: 56 Year
  Sex: Male

DRUGS (17)
  1. PONATINIB [Suspect]
     Active Substance: PONATINIB
     Indication: Chronic myeloid leukaemia
     Dosage: UNK
     Route: 048
  2. PONATINIB [Suspect]
     Active Substance: PONATINIB
     Dosage: 45 MILLIGRAM, QD
     Route: 048
     Dates: start: 20191022
  3. PONATINIB [Suspect]
     Active Substance: PONATINIB
     Dosage: 15 MILLIGRAM
     Route: 048
     Dates: start: 20191104
  4. PONATINIB [Suspect]
     Active Substance: PONATINIB
     Dosage: 15 MILLIGRAM
     Route: 048
     Dates: start: 20191205, end: 20200313
  5. PONATINIB [Suspect]
     Active Substance: PONATINIB
     Dosage: 15 MILLIGRAM, QOD
     Route: 048
     Dates: start: 20200505, end: 20210623
  6. ASPIRIN [Concomitant]
     Active Substance: ASPIRIN
     Indication: Product used for unknown indication
     Dosage: 80 MILLIGRAM
     Route: 065
  7. ASPIRIN [Concomitant]
     Active Substance: ASPIRIN
     Indication: Product used for unknown indication
     Dosage: UNK
     Route: 065
  8. AMLODIPINE [Concomitant]
     Active Substance: AMLODIPINE BESYLATE
     Indication: Product used for unknown indication
     Dosage: UNK
     Route: 065
  9. BISOPROLOL [Concomitant]
     Active Substance: BISOPROLOL
     Indication: Product used for unknown indication
     Dosage: UNK
     Route: 065
  10. ENOXAPARIN SODIUM [Concomitant]
     Active Substance: ENOXAPARIN SODIUM
     Indication: Product used for unknown indication
     Dosage: UNK
     Route: 065
  11. IMODIUM [Concomitant]
     Active Substance: LOPERAMIDE HYDROCHLORIDE
     Indication: Product used for unknown indication
     Dosage: UNK
     Route: 065
  12. PANTOPRAZOLE SODIUM [Concomitant]
     Active Substance: PANTOPRAZOLE SODIUM
     Indication: Product used for unknown indication
     Dosage: 40 MILLIGRAM
     Route: 065
  13. SIMVASTATINE TEVA [Concomitant]
     Indication: Product used for unknown indication
     Dosage: UNK
     Route: 065
  14. DIHYDROCODEINE BITARTRATE [Concomitant]
     Active Substance: DIHYDROCODEINE BITARTRATE
     Indication: Product used for unknown indication
     Dosage: UNK
     Route: 065
  15. Dexeryl [Concomitant]
     Indication: Product used for unknown indication
     Dosage: UNK
     Route: 065
  16. FERROUS SULFATE [Concomitant]
     Active Substance: FERROUS SULFATE
     Indication: Product used for unknown indication
     Dosage: 80 MILLIGRAM
     Route: 065
  17. CLOPIDOGREL [Concomitant]
     Active Substance: CLOPIDOGREL BISULFATE
     Indication: Product used for unknown indication
     Dosage: 75 MILLIGRAM
     Route: 065

REACTIONS (14)
  - Peripheral ischaemia [Recovered/Resolved]
  - Intestinal ischaemia [Recovered/Resolved]
  - Chronic myeloid leukaemia recurrent [Unknown]
  - Renal failure [Recovered/Resolved]
  - Mesenteric arterial occlusion [Unknown]
  - Rash [Not Recovered/Not Resolved]
  - Back pain [Recovered/Resolved]
  - Fatigue [Not Recovered/Not Resolved]
  - Nausea [Recovered/Resolved]
  - Dyspnoea [Not Recovered/Not Resolved]
  - Headache [Recovered/Resolved]
  - Dry skin [Unknown]
  - Decreased appetite [Unknown]
  - Weight decreased [Unknown]

NARRATIVE: CASE EVENT DATE: 20190212
